FAERS Safety Report 25177098 (Version 2)
Quarter: 2025Q2

REPORT INFORMATION
  Report Type: Spontaneous
  Country: US (occurrence: US)
  Receive Date: 20250409
  Receipt Date: 20250409
  Transmission Date: 20250716
  Serious: Yes (Other)
  Sender: GILEAD
  Company Number: US-GILEAD-2025-0709618

PATIENT

DRUGS (18)
  1. DESCOVY [Suspect]
     Active Substance: EMTRICITABINE\TENOFOVIR ALAFENAMIDE FUMARATE
     Indication: Product used for unknown indication
     Route: 065
  2. WELLBUTRIN [Concomitant]
     Active Substance: BUPROPION HYDROCHLORIDE
  3. WELLBUTRIN [Concomitant]
     Active Substance: BUPROPION HYDROCHLORIDE
  4. GUANFACINE [Concomitant]
     Active Substance: GUANFACINE
  5. VALACYCLOVIR [Concomitant]
     Active Substance: VALACYCLOVIR HYDROCHLORIDE
  6. LYSINE [Concomitant]
     Active Substance: LYSINE
  7. TAURINE [Concomitant]
     Active Substance: TAURINE
  8. FISH OIL [Concomitant]
     Active Substance: FISH OIL
  9. CHOLECALCIFEROL [Concomitant]
     Active Substance: CHOLECALCIFEROL
  10. COBAMAMIDE [Concomitant]
     Active Substance: COBAMAMIDE
  11. TONGKAT ALI [EPIMEDIUM SPP.;EURYCOMA LONGIFOLIA;LEPIDIUM MEYENII ROOT; [Concomitant]
     Route: 065
  12. TONGKAT ALI [EPIMEDIUM SPP.;EURYCOMA LONGIFOLIA;LEPIDIUM MEYENII ROOT; [Concomitant]
     Route: 065
  13. SHILAJITVADI BATI [Concomitant]
  14. METHYLENE BLUE [Concomitant]
     Active Substance: METHYLENE BLUE
  15. VITAMIN C [Concomitant]
     Active Substance: ASCORBIC ACID
  16. ZINC LOZENGES [ASCORBIC ACID;BIOFLAVONOIDS NOS;GLYCINE;PROPOLIS;ZINC G [Concomitant]
  17. MONOLAURIN [GLYCERINE MONOLAURATE] [Concomitant]
  18. RITALIN [Concomitant]
     Active Substance: METHYLPHENIDATE HYDROCHLORIDE

REACTIONS (6)
  - Metal poisoning [Unknown]
  - Brain fog [Not Recovered/Not Resolved]
  - Ocular hyperaemia [Unknown]
  - Vision blurred [Unknown]
  - Malaise [Unknown]
  - Nasopharyngitis [Unknown]
